FAERS Safety Report 24182335 (Version 2)
Quarter: 2024Q3

REPORT INFORMATION
  Report Type: Spontaneous
  Country: US (occurrence: US)
  Receive Date: 20240807
  Receipt Date: 20240820
  Transmission Date: 20241016
  Serious: Yes (Other)
  Sender: ALCON
  Company Number: US-ALCON LABORATORIES-ALC2024US003652

PATIENT
  Sex: Female

DRUGS (1)
  1. GENTEAL TEARS SEVERE [Suspect]
     Active Substance: HYPROMELLOSE 2910 (4000 MPA.S)
     Indication: Product used for unknown indication
     Dosage: 1 TO 3 TIMES A DAY
     Route: 047

REACTIONS (3)
  - Product contamination microbial [Unknown]
  - Product impurity [Unknown]
  - Exposure to fungus [Recovered/Resolved]

NARRATIVE: CASE EVENT DATE: 20240801
